FAERS Safety Report 22062622 (Version 2)
Quarter: 2023Q1

REPORT INFORMATION
  Report Type: Spontaneous
  Country: US (occurrence: US)
  Receive Date: 20230306
  Receipt Date: 20230315
  Transmission Date: 20230418
  Serious: No
  Sender: FDA-Public Use
  Company Number: US-LUPIN PHARMACEUTICALS INC.-2023-01644

PATIENT

DRUGS (4)
  1. MOXIFLOXACIN HYDROCHLORIDE [Suspect]
     Active Substance: MOXIFLOXACIN HYDROCHLORIDE
     Indication: Cataract
     Dosage: 1 DOSAGE FORM, TID (1 DROP 3 TIMES A DAY)
     Route: 047
  2. UNSPECIFIED INGREDIENT [Concomitant]
     Active Substance: UNSPECIFIED INGREDIENT
     Indication: Coronary artery disease
     Dosage: UNK
     Route: 065
  3. TAMSULOSIN [Concomitant]
     Active Substance: TAMSULOSIN
     Indication: Prostatic disorder
     Dosage: UNK
     Route: 065
  4. RAMIPRIL [Concomitant]
     Active Substance: RAMIPRIL
     Indication: Blood pressure abnormal
     Dosage: UNK
     Route: 065

REACTIONS (4)
  - Incorrect product formulation administered [Unknown]
  - Product storage error [Unknown]
  - Product use in unapproved indication [Unknown]
  - No adverse event [Unknown]
